FAERS Safety Report 11405780 (Version 1)
Quarter: 2015Q3

REPORT INFORMATION
  Report Type: Spontaneous
  Country: CA (occurrence: CA)
  Receive Date: 20150821
  Receipt Date: 20150821
  Transmission Date: 20151125
  Serious: Yes (Hospitalization)
  Sender: FDA-Public Use
  Company Number: CA-GLAXOSMITHKLINE-CA2015GSK119877

PATIENT
  Age: 37 Year
  Sex: Male
  Weight: 70.5 kg

DRUGS (8)
  1. WELLBUTRIN XL [Suspect]
     Active Substance: BUPROPION HYDROCHLORIDE
     Indication: PRODUCT USED FOR UNKNOWN INDICATION
     Dosage: 300 MG, 1D
     Route: 048
  2. REMERON RD [Suspect]
     Active Substance: MIRTAZAPINE
     Indication: PRODUCT USED FOR UNKNOWN INDICATION
     Dosage: 7.5 MG ORALLY DISINTEGRATING TABLET, 1D
     Route: 048
  3. MORPHINE [Concomitant]
     Active Substance: MORPHINE
  4. SANDOSTATIN [Concomitant]
     Active Substance: OCTREOTIDE ACETATE
  5. FENTANYL. [Concomitant]
     Active Substance: FENTANYL
  6. LOPERAMIDE [Concomitant]
     Active Substance: LOPERAMIDE
  7. MAGNESIUM GLUCOHEPTONATE [Concomitant]
  8. TRAZODONE [Concomitant]
     Active Substance: TRAZODONE HYDROCHLORIDE

REACTIONS (3)
  - Dystonia [Unknown]
  - Muscle spasms [Unknown]
  - Pain in extremity [Unknown]
